FAERS Safety Report 11394705 (Version 2)
Quarter: 2015Q3

REPORT INFORMATION
  Report Type: Report from Study
  Country: BE (occurrence: BE)
  Receive Date: 20150819
  Receipt Date: 20150824
  Transmission Date: 20151125
  Serious: Yes (Hospitalization)
  Sender: FDA-Public Use
  Company Number: BE-ABBVIE-15P-013-1370145-00

PATIENT
  Sex: Male

DRUGS (8)
  1. DUODOPA [Suspect]
     Active Substance: CARBIDOPA\LEVODOPA
     Dosage: AM: 9ML; CD: 5.1ML/H FOR 16HRS; ED: 3ML
     Route: 050
     Dates: start: 20150121, end: 20150129
  2. DUODOPA [Suspect]
     Active Substance: CARBIDOPA\LEVODOPA
     Indication: PARKINSON^S DISEASE
     Dosage: UNKNOWN
     Route: 050
     Dates: start: 20150120, end: 20150121
  3. DUODOPA [Suspect]
     Active Substance: CARBIDOPA\LEVODOPA
     Dosage: AM: 9ML; CD: 5.5ML/H FOR 16HRS; ED: 3ML
     Route: 050
     Dates: start: 20150309, end: 20150326
  4. DUODOPA [Suspect]
     Active Substance: CARBIDOPA\LEVODOPA
     Dosage: AM = 8 ML, CD = 4.5 ML/H DURING 16H, ED = 3 ML
     Route: 050
     Dates: start: 20150407, end: 20150724
  5. DUODOPA [Suspect]
     Active Substance: CARBIDOPA\LEVODOPA
     Dosage: CONTINUOUSLY MONITORED AND ADJUSTED
     Route: 050
     Dates: start: 20150129, end: 20150309
  6. DUODOPA [Suspect]
     Active Substance: CARBIDOPA\LEVODOPA
     Dosage: AM: 9ML; CD: 4.8ML/H FOR 16HRS; ED: 3ML
     Route: 050
     Dates: start: 20150326, end: 20150407
  7. DUODOPA [Suspect]
     Active Substance: CARBIDOPA\LEVODOPA
     Dosage: AM: 8ML; CD: 4.8ML/H FOR 16 HRS; ED: 3ML
     Route: 050
     Dates: start: 20150724, end: 20150805
  8. CITALOPRAM [Concomitant]
     Active Substance: CITALOPRAM HYDROBROMIDE
     Indication: PRODUCT USED FOR UNKNOWN INDICATION

REACTIONS (5)
  - Stoma site extravasation [Unknown]
  - Device dislocation [Unknown]
  - Stoma site inflammation [Unknown]
  - Stoma site infection [Unknown]
  - Suture rupture [Unknown]
